FAERS Safety Report 15829457 (Version 1)
Quarter: 2019Q1

REPORT INFORMATION
  Report Type: Spontaneous
  Country: US (occurrence: US)
  Receive Date: 20190115
  Receipt Date: 20190115
  Transmission Date: 20190417
  Serious: No
  Sender: FDA-Public Use
  Company Number: US-PERRIGO-18US007386

PATIENT
  Age: 72 Year
  Sex: Female
  Weight: 48.98 kg

DRUGS (2)
  1. TRETINOIN. [Suspect]
     Active Substance: TRETINOIN
     Dosage: SMALL AMOUNT TO NECK, QOD AT NIGHT
     Route: 061
     Dates: start: 201807
  2. TRETINOIN. [Suspect]
     Active Substance: TRETINOIN
     Indication: SKIN WRINKLING
     Dosage: SMALL AMOUNT TO FACE, QHS
     Route: 061
     Dates: start: 20180518

REACTIONS (5)
  - Application site hyperaesthesia [Unknown]
  - Off label use [Unknown]
  - Therapeutic response unexpected [Unknown]
  - Application site erythema [Unknown]
  - Application site warmth [Unknown]

NARRATIVE: CASE EVENT DATE: 20180518
